FAERS Safety Report 8354984-X (Version None)
Quarter: 2012Q2

REPORT INFORMATION
  Report Type: 
  Country: None (occurrence: None)
  Receive Date: 20120511
  Receipt Date: 20120427
  Transmission Date: 20120825
  Serious: Yes (Death, Other)
  Sender: FDA-Public Use
  Company Number: JP-UCBSA-056438

PATIENT
  Age: 74 Year
  Sex: Male
  Weight: 68.5 kg

DRUGS (17)
  1. FLUOROURACIL [Suspect]
     Dosage: DAILY DOSE : 5250 MG
     Route: 041
     Dates: start: 20111215, end: 20111215
  2. FLUOROURACIL [Suspect]
     Dosage: DAILY DOSE : 5250 MG
     Route: 041
     Dates: start: 20120105, end: 20120105
  3. DIAZEPAM [Concomitant]
     Dosage: DAILY DOSE: 5 MG
     Route: 048
     Dates: end: 20111215
  4. LENDORMIN [Concomitant]
     Dosage: DAILY DOSE: 0.25 MG
     Route: 048
     Dates: end: 20111215
  5. IRINOTECAN HCL [Suspect]
     Dosage: DAILY DOSE : 280 MG
     Route: 041
     Dates: start: 20111215, end: 20111215
  6. DECADRON [Concomitant]
     Dosage: DAILY DOSE : 6.6 MG
     Route: 041
     Dates: start: 20120115, end: 20120115
  7. LEVOLEUCOVORIN CALCIUM [Suspect]
     Dosage: DAILY DOSE : 375 MG
     Route: 041
     Dates: start: 20120105, end: 20120105
  8. BETAMETHASONE [Concomitant]
     Dosage: DAILY DOSE: 2 MG
     Route: 048
     Dates: end: 20120115
  9. FAMOTIDINE [Concomitant]
     Indication: PROPHYLAXIS AGAINST GASTROINTESTINAL ULCER
     Dosage: DAILY DOSE : 40 MG
     Route: 048
     Dates: end: 20120115
  10. KEPPRA [Suspect]
     Indication: SIMPLE PARTIAL SEIZURES
     Dosage: AFTER MEAL
     Route: 048
     Dates: start: 20111121, end: 20120117
  11. LEVOLEUCOVORIN CALCIUM [Suspect]
     Dosage: DAILY DOSE : 375 MG
     Route: 041
     Dates: start: 20111215, end: 20111215
  12. IRINOTECAN HCL [Suspect]
     Dosage: DAILY DOSE : 280 MG
     Route: 041
     Dates: start: 20120105, end: 20120105
  13. ZONISAMIDE [Suspect]
     Indication: SIMPLE PARTIAL SEIZURES
     Dosage: DAILY DOSE : 200 MG
     Route: 048
     Dates: end: 20120117
  14. EPINASTINE HYDROCHLORIDE [Concomitant]
     Dosage: DAILY DOSE: 20 MG
     Route: 048
     Dates: end: 20120115
  15. GASLON N [Concomitant]
     Indication: PROPHYLAXIS AGAINST GASTROINTESTINAL ULCER
     Dosage: DAILY DOSE : 4 MG
     Route: 048
     Dates: end: 20120115
  16. DECADRON [Concomitant]
     Dosage: DAILY DOSE : 6.6 MG
     Route: 041
     Dates: start: 20111215, end: 20111215
  17. ROHYPNOL [Concomitant]
     Dosage: DAILY DOSE: 2 MG
     Route: 048
     Dates: end: 20111215

REACTIONS (2)
  - COLON CANCER RECURRENT [None]
  - GRANULOCYTOPENIA [None]
